FAERS Safety Report 13175654 (Version 2)
Quarter: 2017Q1

REPORT INFORMATION
  Report Type: Spontaneous
  Country: CH (occurrence: CH)
  Receive Date: 20170201
  Receipt Date: 20170213
  Transmission Date: 20170428
  Serious: Yes (Other)
  Sender: FDA-Public Use
  Company Number: CH-AMGEN-CHESP2017013559

PATIENT
  Age: 62 Year
  Sex: Female
  Weight: 48 kg

DRUGS (8)
  1. PANTOZOL [Concomitant]
     Active Substance: PANTOPRAZOLE SODIUM
     Dosage: 20 MG, QD
     Dates: start: 201602
  2. ASPIRIN. [Concomitant]
     Active Substance: ASPIRIN
     Indication: CORONARY ARTERY DISEASE
     Dosage: 100 MG, QD
     Dates: start: 201602
  3. EUTHYROX [Concomitant]
     Active Substance: LEVOTHYROXINE SODIUM
     Indication: HYPOTHYROIDISM
     Dosage: 100 MUG, QD
  4. EUTHYROX [Concomitant]
     Active Substance: LEVOTHYROXINE SODIUM
     Dosage: 0.1 MG, ONCE IN EVERY TWO DAYS
  5. EUTHYROX [Concomitant]
     Active Substance: LEVOTHYROXINE SODIUM
     Dosage: 0.075 MG, ONCE IN EVERY TWO DAYS
  6. REPATHA [Suspect]
     Active Substance: EVOLOCUMAB
     Indication: CORONARY ARTERY DISEASE
     Dosage: 140 MG, Q2WK
     Route: 058
     Dates: start: 201612
  7. BRILIQUE [Concomitant]
     Active Substance: TICAGRELOR
     Indication: CORONARY ARTERY DISEASE
     Dosage: 90 MG, BID
     Dates: start: 201602
  8. REPATHA [Suspect]
     Active Substance: EVOLOCUMAB
     Indication: HYPERCHOLESTEROLAEMIA

REACTIONS (7)
  - Rash [Recovered/Resolved]
  - Drug ineffective [Unknown]
  - Arthralgia [Recovered/Resolved]
  - Myalgia [Recovered/Resolved]
  - Blister [Recovered/Resolved]
  - Pruritus [Recovered/Resolved]
  - Influenza [Recovered/Resolved]

NARRATIVE: CASE EVENT DATE: 2016
